FAERS Safety Report 7505764-6 (Version None)
Quarter: 2011Q2

REPORT INFORMATION
  Report Type: 
  Country: None (occurrence: None)
  Receive Date: 20110526
  Receipt Date: 20110517
  Transmission Date: 20111010
  Serious: Yes (Other)
  Sender: FDA-Public Use
  Company Number: US-ALEXION-A201100560

PATIENT
  Sex: Male

DRUGS (12)
  1. AVODART [Concomitant]
     Dosage: 0.5 MG, QD
     Route: 048
  2. FOLIC ACID [Concomitant]
     Dosage: 1 MG, QD
     Route: 048
  3. PLAVIX [Concomitant]
     Dosage: 75 MG, QD
     Route: 048
  4. LIPITOR [Concomitant]
     Dosage: 80 MG, QD
     Route: 048
  5. ASPIRIN [Concomitant]
     Dosage: 81 MG, QD
     Route: 048
  6. ATENOLOL [Concomitant]
     Dosage: 50 MG, QD
     Route: 048
  7. ZETIA [Concomitant]
     Dosage: QD
     Route: 048
  8. ATIVAN [Concomitant]
     Dosage: 1 MG, QD
     Route: 048
  9. SOLIRIS [Suspect]
     Indication: PAROXYSMAL NOCTURNAL HAEMOGLOBINURIA
     Dosage: 900 MG, Q2W
     Route: 042
     Dates: start: 20110331
  10. LEXAPRO [Concomitant]
     Dosage: 10 MG, QD
     Route: 048
  11. CARDIZEM [Concomitant]
     Dosage: 100 MG, QD
     Route: 048
  12. PREVACID [Concomitant]
     Dosage: 15 MG, QD
     Route: 048

REACTIONS (3)
  - DIZZINESS [None]
  - LOBAR PNEUMONIA [None]
  - NAUSEA [None]
